FAERS Safety Report 5768334-6 (Version None)
Quarter: 2008Q2

REPORT INFORMATION
  Report Type: 
  Country: None (occurrence: None)
  Receive Date: 20080612
  Receipt Date: 20080326
  Transmission Date: 20081010
  Serious: No
  Sender: FDA-Public Use
  Company Number: US-ABBOTT-08P-163-0437748-00

PATIENT
  Sex: Female
  Weight: 86.26 kg

DRUGS (10)
  1. HUMIRA [Suspect]
     Indication: REITER'S SYNDROME
     Route: 058
     Dates: start: 20080109, end: 20080206
  2. HUMIRA [Suspect]
     Indication: ANKYLOSING SPONDYLITIS
  3. TRAMADOL HCL [Concomitant]
     Indication: PAIN
  4. TRAMADOL HCL [Concomitant]
     Indication: FIBROMYALGIA
  5. DULOXETINE HYDROCHLORIDE [Concomitant]
     Indication: FIBROMYALGIA
  6. ERGOCALCIFEROL [Concomitant]
     Indication: VITAMIN D DEFICIENCY
  7. CALCIUM [Concomitant]
     Indication: OSTEOPENIA
  8. IBANDRONATE SODIUM [Concomitant]
     Indication: OSTEOPENIA
     Route: 058
  9. VERAMYST [Concomitant]
     Indication: HYPERSENSITIVITY
  10. FEXOFENADINE [Concomitant]
     Indication: HYPERSENSITIVITY

REACTIONS (7)
  - HEADACHE [None]
  - HYPOAESTHESIA FACIAL [None]
  - MOBILITY DECREASED [None]
  - MUSCLE TIGHTNESS [None]
  - PARAESTHESIA [None]
  - SENSORY DISTURBANCE [None]
  - SINUSITIS [None]
